FAERS Safety Report 11728583 (Version 2)
Quarter: 2015Q4

REPORT INFORMATION
  Report Type: Spontaneous
  Country: US (occurrence: US)
  Receive Date: 20151112
  Receipt Date: 20151124
  Transmission Date: 20160304
  Serious: No
  Sender: FDA-Public Use
  Company Number: US-BAYER-2015-461532

PATIENT
  Age: 60 Year
  Sex: Male
  Weight: 84.81 kg

DRUGS (1)
  1. ALEVE [Suspect]
     Active Substance: NAPROXEN SODIUM
     Indication: ANALGESIC THERAPY
     Dosage: 1 DF, PRN
     Route: 048
     Dates: start: 201510

REACTIONS (5)
  - Oropharyngeal pain [Not Recovered/Not Resolved]
  - Wrong technique in product usage process [None]
  - Burning sensation [Recovered/Resolved]
  - Foreign body [Recovered/Resolved]
  - Sensation of foreign body [Recovered/Resolved]

NARRATIVE: CASE EVENT DATE: 20151103
